APPROVED DRUG PRODUCT: BRIMONIDINE TARTRATE AND TIMOLOL MALEATE
Active Ingredient: BRIMONIDINE TARTRATE; TIMOLOL MALEATE
Strength: 0.2%;EQ 0.5% BASE
Dosage Form/Route: SOLUTION/DROPS;OPHTHALMIC
Application: A217288 | Product #001
Applicant: AMNEAL EU LTD
Approved: Dec 30, 2024 | RLD: No | RS: No | Type: DISCN